FAERS Safety Report 9441024 (Version 1)
Quarter: 2013Q3

REPORT INFORMATION
  Report Type: Spontaneous
  Country: US (occurrence: US)
  Receive Date: 20130805
  Receipt Date: 20130805
  Transmission Date: 20140515
  Serious: Yes (Hospitalization, Other)
  Sender: FDA-Public Use
  Company Number: US-009507513-2010SP048853

PATIENT
  Sex: Female
  Weight: 79.38 kg

DRUGS (6)
  1. NUVARING [Suspect]
     Indication: MENSTRUATION IRREGULAR
     Dosage: UNK UNK, QM
     Dates: start: 20071008, end: 200809
  2. NUVARING [Suspect]
     Indication: MENORRHAGIA
  3. NUVARING [Suspect]
     Indication: HORMONE THERAPY
  4. NUVARING [Suspect]
     Indication: MOOD SWINGS
  5. NUVARING [Suspect]
     Indication: MENOPAUSAL SYMPTOMS
  6. BACLOFEN [Concomitant]
     Indication: MUSCLE SPASMS
     Dosage: INTRATHECAL BACLOPHEN PUMP
     Route: 037
     Dates: start: 2005

REACTIONS (8)
  - Deep vein thrombosis [Not Recovered/Not Resolved]
  - Hypertension [Unknown]
  - Somnolence [Unknown]
  - Cellulitis [Unknown]
  - Weight increased [Unknown]
  - Oedema peripheral [Unknown]
  - Urinary tract infection [Unknown]
  - Off label use [Unknown]
